FAERS Safety Report 14926392 (Version 1)
Quarter: 2018Q2

REPORT INFORMATION
  Report Type: Spontaneous
  Country: US (occurrence: US)
  Receive Date: 20180523
  Receipt Date: 20180523
  Transmission Date: 20180711
  Serious: Yes (Hospitalization)
  Sender: FDA-Public Use
  Company Number: US-ROCHE-2126671

PATIENT
  Sex: Male

DRUGS (2)
  1. COTELLIC [Suspect]
     Active Substance: COBIMETINIB
     Indication: SKIN CANCER
     Dosage: 3 TABLETS DAILY 3 WEEKS ON 1WEEK OFF ONGOING: UNKNOWN
     Route: 048
     Dates: start: 20180426
  2. ZELBORAF [Suspect]
     Active Substance: VEMURAFENIB
     Indication: SKIN CANCER
     Dosage: 3 TABLETS, ONGOING: UNKNOWN
     Route: 048
     Dates: start: 20180426

REACTIONS (5)
  - Atrial fibrillation [Unknown]
  - Swelling [Unknown]
  - Confusional state [Unknown]
  - Oesophageal pain [Unknown]
  - Rash [Unknown]
